FAERS Safety Report 9827205 (Version 1)
Quarter: 2014Q1

REPORT INFORMATION
  Report Type: Spontaneous
  Country: US (occurrence: US)
  Receive Date: 20140117
  Receipt Date: 20140117
  Transmission Date: 20141002
  Serious: No
  Sender: FDA-Public Use
  Company Number: US-GLAXOSMITHKLINE-A1047928A

PATIENT
  Age: 78 Year
  Sex: Female

DRUGS (4)
  1. PROMACTA [Suspect]
     Indication: PRODUCT USED FOR UNKNOWN INDICATION
     Dosage: 50MG PER DAY
     Route: 048
  2. EVISTA [Concomitant]
  3. MULTIVITAMIN [Concomitant]
  4. TYLENOL [Concomitant]

REACTIONS (1)
  - Back pain [Unknown]
